FAERS Safety Report 13141158 (Version 2)
Quarter: 2017Q1

REPORT INFORMATION
  Report Type: Report from Study
  Country: CA (occurrence: CA)
  Receive Date: 20170123
  Receipt Date: 20170210
  Transmission Date: 20170428
  Serious: Yes (Death)
  Sender: FDA-Public Use
  Company Number: CA-HLSUS-2017-CA-000075

PATIENT
  Age: 57 Year
  Sex: Female

DRUGS (8)
  1. VALIUM [Concomitant]
     Active Substance: DIAZEPAM
     Dosage: 5 MG TWICE A DAY AS NEEDED
     Route: 048
  2. CLOZARIL [Suspect]
     Active Substance: CLOZAPINE
     Dosage: 400 MG BED TIME
     Route: 048
     Dates: start: 20161222
  3. ACETAMINOPHEN. [Concomitant]
     Active Substance: ACETAMINOPHEN
  4. DEXILANT [Concomitant]
     Active Substance: DEXLANSOPRAZOLE
     Dosage: 60 MG MORNING
     Route: 048
  5. DOCUSATE [Concomitant]
     Active Substance: DOCUSATE
     Dosage: 200 MG MORNING
     Route: 048
  6. LEVETIRACETAM. [Concomitant]
     Active Substance: LEVETIRACETAM
     Dosage: 500 MG MORNING+SUPPER
     Route: 048
  7. LAMOTRIGINE. [Concomitant]
     Active Substance: LAMOTRIGINE
     Dosage: 100 MG TWICE A DAY
     Route: 048
  8. ATORVASTATIN [Concomitant]
     Active Substance: ATORVASTATIN
     Dosage: 20 MG BED TIME
     Route: 048

REACTIONS (3)
  - Malaise [Unknown]
  - Aspiration [Unknown]
  - Death [Fatal]

NARRATIVE: CASE EVENT DATE: 20170116
